FAERS Safety Report 8618586-X (Version None)
Quarter: 2012Q3

REPORT INFORMATION
  Report Type: 
  Country: None (occurrence: None)
  Receive Date: 20120824
  Receipt Date: 20120817
  Transmission Date: 20120928
  Serious: No
  Sender: FDA-Public Use
  Company Number: US-PFIZER INC-2012182106

PATIENT
  Age: 51 Year
  Sex: Male

DRUGS (5)
  1. DEPO-TESTOSTERONE [Suspect]
     Dosage: 100 MG, EVERY 2 WEEKS
     Route: 030
  2. CIALIS [Concomitant]
     Indication: ERECTILE DYSFUNCTION
     Dosage: 20 MG, AS NEEDED
  3. DEPO-TESTOSTERONE [Suspect]
     Indication: BLOOD TESTOSTERONE DECREASED
     Dosage: 1 ML, EVERY 2 WEEKS
     Dates: start: 20120331
  4. NASONEX [Concomitant]
     Indication: RHINITIS ALLERGIC
     Dosage: 2 SPRAYS DAILY
  5. TYLENOL [Concomitant]
     Indication: NECK PAIN
     Dosage: 1 DF, (EVERY 8 HRS)

REACTIONS (2)
  - INCORRECT DOSE ADMINISTERED [None]
  - DRUG INEFFECTIVE [None]
